FAERS Safety Report 4458154-7 (Version None)
Quarter: 2004Q3

REPORT INFORMATION
  Report Type: 
  Country: None (occurrence: None)
  Receive Date: 20040923
  Receipt Date: 20040917
  Transmission Date: 20050211
  Serious: Yes (Other)
  Sender: FDA-Public Use
  Company Number: 002734

PATIENT
  Sex: Female

DRUGS (4)
  1. MEDROXYPROGESTERONE ACETATE [Suspect]
     Dates: start: 19880101, end: 20010101
  2. PROVERA [Suspect]
     Dates: start: 19880101, end: 20010101
  3. PREMARIN [Suspect]
     Dates: start: 19880101, end: 20010101
  4. MEDROXYPROGESTERONE ACETATE [Suspect]
     Dates: start: 19880101, end: 20010101

REACTIONS (1)
  - BREAST CANCER FEMALE [None]
